FAERS Safety Report 13384110 (Version 1)
Quarter: 2017Q1

REPORT INFORMATION
  Report Type: Spontaneous
  Country: US (occurrence: US)
  Receive Date: 20170329
  Receipt Date: 20170329
  Transmission Date: 20170429
  Serious: Yes (Hospitalization)
  Sender: FDA-Public Use
  Company Number: None

PATIENT
  Age: 62 Year
  Sex: Male
  Weight: 113.85 kg

DRUGS (2)
  1. HYDROCHLOROTHIAZIDE. [Suspect]
     Active Substance: HYDROCHLOROTHIAZIDE
     Indication: HYPERTENSION
     Route: 048
     Dates: start: 19970717, end: 20161227
  2. PREDNISONE. [Suspect]
     Active Substance: PREDNISONE
     Indication: ACUTE SINUSITIS
     Dates: start: 20161219, end: 20161227

REACTIONS (9)
  - Insomnia [None]
  - Polyuria [None]
  - Dizziness [None]
  - Diabetic ketoacidosis [None]
  - Polydipsia [None]
  - Blood glucose increased [None]
  - Nausea [None]
  - Blood pressure increased [None]
  - Vision blurred [None]

NARRATIVE: CASE EVENT DATE: 20161227
